FAERS Safety Report 5447299-0 (Version None)
Quarter: 2007Q3

REPORT INFORMATION
  Report Type: 
  Country: None (occurrence: None)
  Receive Date: 20070910
  Receipt Date: 20070829
  Transmission Date: 20080115
  Serious: Yes (Other)
  Sender: FDA-Public Use
  Company Number: US-AVENTIS-200716250US

PATIENT
  Sex: Female

DRUGS (3)
  1. ARAVA [Suspect]
  2. BIAXIN [Suspect]
     Indication: BRONCHITIS
     Dosage: DOSE: UNK
     Dates: end: 20070801
  3. CEFZIL [Suspect]
     Dosage: DOSE: UNK

REACTIONS (3)
  - BRONCHITIS [None]
  - DRUG INTERACTION [None]
  - HYPOTENSION [None]
